FAERS Safety Report 6222506-5 (Version None)
Quarter: 2009Q2

REPORT INFORMATION
  Report Type: 
  Country: None (occurrence: None)
  Receive Date: 20090608
  Receipt Date: 20090605
  Transmission Date: 20091009
  Serious: Yes (Death)
  Sender: FDA-Public Use
  Company Number: US-GENENTECH-283783

PATIENT
  Age: 79 Year
  Sex: Female

DRUGS (4)
  1. BEVACIZUMAB [Suspect]
     Indication: ENDOMETRIAL CANCER
     Dosage: 10 MG/KG, DAYS 1+15
     Route: 042
     Dates: start: 20090122, end: 20090430
  2. TEMSIROLIMUS [Suspect]
     Indication: NON-SMALL CELL LUNG CANCER
     Dosage: 25 MG, UNK
     Route: 042
     Dates: start: 20090122, end: 20090430
  3. TYLENOL (CAPLET) [Concomitant]
     Indication: PAIN
  4. HEPARIN [Concomitant]
     Indication: DRUG USE FOR UNKNOWN INDICATION

REACTIONS (4)
  - CARDIAC ARREST [None]
  - CARDIAC TAMPONADE [None]
  - PERICARDIAL EFFUSION [None]
  - SUDDEN DEATH [None]
